FAERS Safety Report 5087413-2 (Version None)
Quarter: 2006Q3

REPORT INFORMATION
  Report Type: 
  Country: None (occurrence: None)
  Receive Date: 20060824
  Receipt Date: 20060822
  Transmission Date: 20061208
  Serious: Yes (Hospitalization)
  Sender: FDA-Public Use
  Company Number: JP-RB-3768-2006

PATIENT
  Age: 36 Year
  Sex: Female

DRUGS (9)
  1. BUPRENORPHINE HCL [Suspect]
     Indication: BARIUM ENEMA
     Route: 030
     Dates: start: 20060810, end: 20060810
  2. BUPRENORPHINE HCL [Suspect]
     Indication: PAIN
     Route: 030
     Dates: start: 20060810, end: 20060810
  3. TACROLIMUS [Concomitant]
     Indication: DRUG USE FOR UNKNOWN INDICATION
     Dosage: DOSAGE UNKNOWN
     Route: 065
  4. PREDNISOLONE [Concomitant]
     Indication: DRUG USE FOR UNKNOWN INDICATION
     Dosage: DOSAGE UNKNOWN
     Route: 065
  5. WARFARIN SODIUM [Concomitant]
     Indication: DRUG USE FOR UNKNOWN INDICATION
     Route: 065
  6. MEDICINALPRODUCT NOT SPECIFIED BY SENDER [Concomitant]
     Indication: GASTROINTESTINAL DISORDER
     Dosage: DOSAGE UNKNOWN
     Route: 065
  7. MEDICINALPRODUCT NOT SPECIFIED BY SENDER [Concomitant]
     Dosage: DOSAGE UNKNOWN
     Route: 065
  8. MEDICINALPRODUCT NOT SPECIFIED BY SENDER [Concomitant]
     Indication: DIARRHOEA
     Dosage: DOSAGE UNKNOWN
     Route: 065
  9. MEDICINALPRODUCT NOT SPECIFIED BY SENDER [Concomitant]
     Dosage: DOSAGE UNKNOWN
     Route: 065

REACTIONS (14)
  - ASTHENIA [None]
  - CEREBELLAR ATAXIA [None]
  - DIALYSIS [None]
  - DYSARTHRIA [None]
  - DYSPNOEA [None]
  - FALL [None]
  - FEELING ABNORMAL [None]
  - HEADACHE [None]
  - JOINT SPRAIN [None]
  - NAUSEA [None]
  - PRURITUS [None]
  - RESTLESSNESS [None]
  - SHOCK [None]
  - THERAPY NON-RESPONDER [None]
